FAERS Safety Report 4961786-0 (Version None)
Quarter: 2006Q1

REPORT INFORMATION
  Report Type: 
  Country: None (occurrence: None)
  Receive Date: 20060329
  Receipt Date: 20060320
  Transmission Date: 20060701
  Serious: Yes (Hospitalization)
  Sender: FDA-Public Use
  Company Number: 2005-09-1208

PATIENT
  Sex: Female
  Weight: 61.2356 kg

DRUGS (4)
  1. ALBUTEROL SULFATE AUTOHALER [Suspect]
     Dosage: ORAL AER INH
     Route: 055
  2. PROVENTIL [Concomitant]
  3. EXCEDRIN [Concomitant]
  4. ASCORBIC ACID [Concomitant]

REACTIONS (8)
  - ACUTE RESPIRATORY DISTRESS SYNDROME [None]
  - BRONCHITIS [None]
  - DRUG EFFECT DECREASED [None]
  - DRUG HYPERSENSITIVITY [None]
  - PHARMACEUTICAL PRODUCT COMPLAINT [None]
  - PNEUMONIA [None]
  - TACHYCARDIA [None]
  - THROAT IRRITATION [None]
